FAERS Safety Report 8916503 (Version 3)
Quarter: 2013Q1

REPORT INFORMATION
  Report Type: Report from Study
  Country: CA (occurrence: CA)
  Receive Date: 20121120
  Receipt Date: 20130219
  Transmission Date: 20140127
  Serious: Yes (Hospitalization)
  Sender: FDA-Public Use
  Company Number: CA-ROCHE-1136220

PATIENT
  Age: 57 None
  Sex: Male
  Weight: 124 kg

DRUGS (6)
  1. ACTEMRA [Suspect]
     Indication: RHEUMATOID ARTHRITIS
     Route: 042
     Dates: start: 20110728
  2. METHOTREXATE [Concomitant]
  3. FOLIC ACID [Concomitant]
  4. PERCOCET [Concomitant]
  5. INDOMETHACIN [Concomitant]
  6. HYDROMORPH CONTIN [Concomitant]

REACTIONS (6)
  - Blood potassium decreased [Recovering/Resolving]
  - Dyspnoea [Not Recovered/Not Resolved]
  - Oedema peripheral [Not Recovered/Not Resolved]
  - Malaise [Not Recovered/Not Resolved]
  - Weight increased [Not Recovered/Not Resolved]
  - Local swelling [Not Recovered/Not Resolved]
